FAERS Safety Report 10855771 (Version 2)
Quarter: 2015Q1

REPORT INFORMATION
  Report Type: Spontaneous
  Country: CO (occurrence: CO)
  Receive Date: 20150223
  Receipt Date: 20150226
  Transmission Date: 20150721
  Serious: Yes (Death)
  Sender: FDA-Public Use
  Company Number: CO-ASTELLAS-2015US005524

PATIENT
  Age: 47 Year
  Sex: Female

DRUGS (1)
  1. PROGRAF [Suspect]
     Active Substance: TACROLIMUS\TACROLIMUS ANHYDROUS
     Indication: RENAL TRANSPLANT
     Dosage: 5 MG, ONCE DAILY (IN 24 HOUR)
     Route: 048
     Dates: start: 20120313, end: 20141125

REACTIONS (1)
  - Death [Fatal]

NARRATIVE: CASE EVENT DATE: 20141125
